FAERS Safety Report 9620170 (Version 1)
Quarter: 2013Q4

REPORT INFORMATION
  Report Type: Spontaneous
  Country: US (occurrence: US)
  Receive Date: 20131014
  Receipt Date: 20131014
  Transmission Date: 20140711
  Serious: Yes (Other)
  Sender: FDA-Public Use
  Company Number: US-PFIZER INC-2013232035

PATIENT
  Age: 63 Year
  Sex: Female
  Weight: 83.9 kg

DRUGS (7)
  1. ATENOLOL [Suspect]
     Indication: HYPERTENSION
     Dosage: 25 MG, UNK
     Dates: start: 2013
  2. ATENOLOL [Suspect]
     Dosage: 50 MG, UNK
     Dates: start: 2013, end: 201308
  3. CHANTIX [Suspect]
     Indication: SMOKING CESSATION THERAPY
     Dosage: UNK
     Dates: start: 201211, end: 201308
  4. EFFEXOR XR [Suspect]
     Indication: DEPRESSION
     Dosage: 35 MG, 2X/DAY
  5. EFFEXOR XR [Suspect]
     Dosage: 75 MG, 1X/DAY
  6. EFFEXOR XR [Suspect]
     Dosage: UNK
  7. VENLAFAXINE HCL [Suspect]
     Indication: DEPRESSION
     Dosage: UNK
     Dates: end: 20130806

REACTIONS (9)
  - Urinary tract infection [Recovering/Resolving]
  - Heart rate decreased [Unknown]
  - Dizziness [Recovering/Resolving]
  - Hyperhidrosis [Recovering/Resolving]
  - Balance disorder [Recovering/Resolving]
  - Paraesthesia [Recovered/Resolved]
  - Strabismus [Recovering/Resolving]
  - Feeling abnormal [Recovering/Resolving]
  - Body temperature increased [Recovering/Resolving]
